FAERS Safety Report 8240536-9 (Version None)
Quarter: 2012Q1

REPORT INFORMATION
  Report Type: 
  Country: None (occurrence: None)
  Receive Date: 20120328
  Receipt Date: 20120314
  Transmission Date: 20120608
  Serious: Yes (Disabling, Other)
  Sender: FDA-Public Use
  Company Number: IN-ROCHE-1052848

PATIENT
  Age: 77 Year
  Sex: Male

DRUGS (8)
  1. FUROSEMIDE [Concomitant]
  2. RAMIPRIL [Concomitant]
  3. SORBITRATE [Concomitant]
  4. CLOPIDOGREL [Concomitant]
  5. ECOSPRIN [Concomitant]
  6. ATORVASTATIN [Concomitant]
  7. METALYSE [Suspect]
     Indication: ACUTE MYOCARDIAL INFARCTION
     Route: 042
     Dates: start: 20120225, end: 20120225
  8. HEPARIN [Concomitant]

REACTIONS (2)
  - CEREBRAL HAEMORRHAGE [None]
  - HEMIPARESIS [None]
